FAERS Safety Report 7946512-5 (Version None)
Quarter: 2011Q4

REPORT INFORMATION
  Report Type: 
  Country: None (occurrence: None)
  Receive Date: 20111129
  Receipt Date: 20111118
  Transmission Date: 20120403
  Serious: Yes (Hospitalization)
  Sender: FDA-Public Use
  Company Number: US-NOVOPROD-339772

PATIENT

DRUGS (2)
  1. GLIPIZIDE [Concomitant]
     Indication: TYPE 2 DIABETES MELLITUS
  2. NOVOLOG [Suspect]
     Indication: TYPE 2 DIABETES MELLITUS
     Dosage: SLIDING SCALE
     Route: 058
     Dates: start: 20111001, end: 20111114

REACTIONS (4)
  - OVERDOSE [None]
  - SOMNOLENCE [None]
  - HYPOTENSION [None]
  - BLOOD GLUCOSE DECREASED [None]
